FAERS Safety Report 21369876 (Version 1)
Quarter: 2022Q3

REPORT INFORMATION
  Report Type: Spontaneous
  Country: US (occurrence: None)
  Receive Date: 20220922
  Receipt Date: 20220922
  Transmission Date: 20221026
  Serious: Yes (Hospitalization)
  Sender: FDA-Public Use
  Company Number: None

PATIENT
  Sex: Male

DRUGS (7)
  1. HUMIRA [Suspect]
     Active Substance: ADALIMUMAB
  2. ATENOLOL [Concomitant]
     Active Substance: ATENOLOL
  3. CITRUCEL TAB [Concomitant]
  4. MAGNESIUM TAB [Concomitant]
  5. MULTI-DAY TAB [Concomitant]
  6. PEPCID [Concomitant]
     Active Substance: FAMOTIDINE
  7. POTASSIUM TAB [Concomitant]

REACTIONS (1)
  - Therapy interrupted [None]
